FAERS Safety Report 4501276-2 (Version None)
Quarter: 2004Q4

REPORT INFORMATION
  Report Type: 
  Country: None (occurrence: None)
  Receive Date: 20040927
  Receipt Date: 20040813
  Transmission Date: 20050328
  Serious: No
  Sender: FDA-Public Use
  Company Number: USA030947135

PATIENT
  Age: 12 Year
  Sex: Male
  Weight: 41 kg

DRUGS (2)
  1. STRATTERA [Suspect]
     Indication: ATTENTION DEFICIT/HYPERACTIVITY DISORDER
     Dosage: 60 MG/1 DAY
     Dates: start: 20030911, end: 20040601
  2. PROZAC [Concomitant]

REACTIONS (9)
  - CRYING [None]
  - DECREASED APPETITE [None]
  - DEPRESSION [None]
  - FEELING COLD [None]
  - LETHARGY [None]
  - NAUSEA [None]
  - SOMNOLENCE [None]
  - VOMITING [None]
  - WEIGHT DECREASED [None]
